FAERS Safety Report 11749174 (Version 1)
Quarter: 2015Q4

REPORT INFORMATION
  Report Type: Spontaneous
  Country: US (occurrence: US)
  Receive Date: 20151118
  Receipt Date: 20151118
  Transmission Date: 20160304
  Serious: Yes (Hospitalization)
  Sender: FDA-Public Use
  Company Number: US-SUN PHARMACEUTICAL INDUSTRIES LTD-2015US-106127

PATIENT
  Age: 68 Year
  Sex: Female

DRUGS (2)
  1. ANASTROZOLE. [Suspect]
     Active Substance: ANASTROZOLE
     Indication: NEOPLASM MALIGNANT
     Dosage: 1 MG, QD
     Route: 048
     Dates: start: 20150415, end: 20150422
  2. LETROZOLE. [Suspect]
     Active Substance: LETROZOLE
     Indication: NEOPLASM MALIGNANT
     Dosage: 2.5 MG, QD
     Route: 048
     Dates: start: 20151011

REACTIONS (13)
  - Pain [Unknown]
  - Vulvovaginal burning sensation [Not Recovered/Not Resolved]
  - Joint swelling [Unknown]
  - Dry skin [Unknown]
  - Breast tenderness [Unknown]
  - Atrial fibrillation [Unknown]
  - Peripheral swelling [Unknown]
  - Headache [Unknown]
  - Drug ineffective [Unknown]
  - Pain in extremity [Unknown]
  - Insomnia [Unknown]
  - Headache [Unknown]
  - Vulvovaginal pain [Unknown]

NARRATIVE: CASE EVENT DATE: 201504
